FAERS Safety Report 20610663 (Version 2)
Quarter: 2022Q1

REPORT INFORMATION
  Report Type: Spontaneous
  Country: US (occurrence: US)
  Receive Date: 20220318
  Receipt Date: 20220330
  Transmission Date: 20220423
  Serious: No
  Sender: FDA-Public Use
  Company Number: US-AIMMUNE THERAPEUTICS, INC.-2022AIMT00192

PATIENT

DRUGS (2)
  1. PALFORZIA [Suspect]
     Active Substance: PEANUT
     Indication: Food allergy
     Dosage: 160 MG, 1X/DAY
     Route: 048
     Dates: start: 20220221
  2. LORATADINE [Concomitant]
     Active Substance: LORATADINE
     Indication: Nasal congestion
     Dosage: 10 MG, 1X/DAY
     Dates: start: 20200307

REACTIONS (1)
  - No adverse event [Unknown]
